FAERS Safety Report 25054995 (Version 2)
Quarter: 2025Q1

REPORT INFORMATION
  Report Type: Report from Study
  Country: US (occurrence: US)
  Receive Date: 20250308
  Receipt Date: 20250327
  Transmission Date: 20250408
  Serious: Yes (Hospitalization, Other)
  Sender: ABBVIE
  Company Number: US-ABBVIE-6161882

PATIENT
  Age: 71 Year
  Sex: Male
  Weight: 68.038 kg

DRUGS (1)
  1. SKYRIZI [Suspect]
     Active Substance: RISANKIZUMAB-RZAA
     Indication: Crohn^s disease
     Route: 058
     Dates: start: 20230621

REACTIONS (10)
  - Poor peripheral circulation [Recovering/Resolving]
  - Peripheral swelling [Recovering/Resolving]
  - Influenza [Recovered/Resolved]
  - Feeding disorder [Recovered/Resolved]
  - Feeding disorder [Recovered/Resolved]
  - Asthenia [Recovered/Resolved]
  - Weight decreased [Recovering/Resolving]
  - Pain in extremity [Recovering/Resolving]
  - Illness [Recovered/Resolved]
  - Kidney infection [Recovered/Resolved]

NARRATIVE: CASE EVENT DATE: 20230101
